FAERS Safety Report 24330120 (Version 1)
Quarter: 2024Q3

REPORT INFORMATION
  Report Type: Report from Study
  Country: US (occurrence: US)
  Receive Date: 20240917
  Receipt Date: 20240917
  Transmission Date: 20241017
  Serious: Yes (Other)
  Sender: SANDOZ
  Company Number: US-SANDOZ-SDZ2024US068718

PATIENT
  Sex: Female

DRUGS (1)
  1. GLATOPA [Suspect]
     Active Substance: GLATIRAMER ACETATE
     Indication: Multiple sclerosis
     Dosage: 40 MG, OTHER, 3 X A WEEK, SPACED 48 HOURS APART
     Route: 058

REACTIONS (3)
  - Autoimmune disorder [Unknown]
  - Anaemia [Unknown]
  - Skin disorder [Unknown]
